FAERS Safety Report 13089067 (Version 1)
Quarter: 2017Q1

REPORT INFORMATION
  Report Type: Spontaneous
  Country: US (occurrence: US)
  Receive Date: 20170104
  Receipt Date: 20170104
  Transmission Date: 20170428
  Serious: Yes (Disabling, Other)
  Sender: FDA-Public Use
  Company Number: None

PATIENT
  Age: 51 Year
  Sex: Female
  Weight: 112.5 kg

DRUGS (3)
  1. HUMALOG KWIKPEN [Suspect]
     Active Substance: INSULIN LISPRO
     Indication: TYPE 1 DIABETES MELLITUS
     Dosage: 100 UNITS; SUBQ INJECTION AS NEEDED?
     Route: 058
     Dates: start: 20161228, end: 20170103
  2. FAST ACTING INSULIN [Concomitant]
  3. LONG ACTING INSULIN [Concomitant]
     Active Substance: INSULIN NOS

REACTIONS (3)
  - Device malfunction [None]
  - Device issue [None]
  - Blood glucose increased [None]

NARRATIVE: CASE EVENT DATE: 20170101
